FAERS Safety Report 10945918 (Version 1)
Quarter: 2015Q1

REPORT INFORMATION
  Report Type: Spontaneous
  Country: US (occurrence: US)
  Receive Date: 20150323
  Receipt Date: 20150323
  Transmission Date: 20150721
  Serious: Yes (Other)
  Sender: FDA-Public Use
  Company Number: US-BAYER-2015-045086

PATIENT
  Age: 23 Year
  Sex: Female

DRUGS (1)
  1. MIRENA [Suspect]
     Active Substance: LEVONORGESTREL
     Indication: CONTRACEPTION
     Dosage: 20 MCG/24HR, CONT
     Route: 015
     Dates: start: 2014

REACTIONS (8)
  - Device dislocation [Recovered/Resolved]
  - Breast tenderness [None]
  - Feeling abnormal [None]
  - Off label use [None]
  - Pain [None]
  - Abdominal pain lower [None]
  - Nausea [None]
  - Pollakiuria [None]

NARRATIVE: CASE EVENT DATE: 201501
